FAERS Safety Report 7478149-9 (Version None)
Quarter: 2011Q2

REPORT INFORMATION
  Report Type: 
  Country: None (occurrence: None)
  Receive Date: 20110505
  Receipt Date: 20110421
  Transmission Date: 20111010
  Serious: Yes (Congenital Anomaly, Other)
  Sender: FDA-Public Use
  Company Number: 030747

PATIENT
  Sex: Female
  Weight: 0.1 kg

DRUGS (3)
  1. FOLIC ACID [Concomitant]
  2. KEPPRA [Suspect]
     Indication: EPILEPSY
     Dosage: (2000 MG BID, 2000MG AM AN D2000MG PM TRANSPLACENTAL)
     Route: 064
  3. PRENATAL VITAMINS /01549301/ [Concomitant]

REACTIONS (5)
  - SPINA BIFIDA [None]
  - MENINGOMYELOCELE [None]
  - NEURAL TUBE DEFECT [None]
  - MATERNAL DRUGS AFFECTING FOETUS [None]
  - ANENCEPHALY [None]
